FAERS Safety Report 20533159 (Version 1)
Quarter: 2022Q1

REPORT INFORMATION
  Report Type: Spontaneous
  Country: US (occurrence: US)
  Receive Date: 20220301
  Receipt Date: 20220301
  Transmission Date: 20220423
  Serious: Yes (Hospitalization)
  Sender: FDA-Public Use
  Company Number: US-GENERICUS, INC.-2022GNR00004

PATIENT
  Age: 36 Year
  Sex: Male
  Weight: 67.12 kg

DRUGS (3)
  1. TOBRAMYCIN [Suspect]
     Active Substance: TOBRAMYCIN
     Indication: Cystic fibrosis
     Dosage: 300 MG/5 ML, 1X/DAY EVERY OTHER MONTH
     Dates: start: 20200826, end: 2021
  2. TOBRAMYCIN [Suspect]
     Active Substance: TOBRAMYCIN
     Dosage: 300 MG/5 ML (1 VIAL) VIA NEBULIZER, 2X/DAY, 28 DAYS ON AND 28 DAYS OFF
     Dates: start: 2021
  3. TRIKAFTA [Suspect]
     Active Substance: ELEXACAFTOR\IVACAFTOR\TEZACAFTOR
     Dosage: UNK

REACTIONS (5)
  - Haematemesis [Recovering/Resolving]
  - Abdominal distension [Recovering/Resolving]
  - Ulcer haemorrhage [Recovering/Resolving]
  - Hepatic enzyme increased [Unknown]
  - Off label use [Recovered/Resolved]

NARRATIVE: CASE EVENT DATE: 20200826
